FAERS Safety Report 16972317 (Version 1)
Quarter: 2019Q4

REPORT INFORMATION
  Report Type: Spontaneous
  Country: CN (occurrence: CN)
  Receive Date: 20191029
  Receipt Date: 20191029
  Transmission Date: 20200122
  Serious: Yes (Hospitalization)
  Sender: FDA-Public Use
  Company Number: ALC2019CN001216

PATIENT
  Age: 65 Year
  Sex: Male
  Weight: 65 kg

DRUGS (1)
  1. FLUORESCITE [Suspect]
     Active Substance: FLUORESCEIN SODIUM
     Indication: ANGIOGRAM
     Dosage: 0.5 G, OT
     Route: 042
     Dates: start: 20191012, end: 20191012

REACTIONS (3)
  - Temperature intolerance [Recovering/Resolving]
  - Pyrexia [Recovering/Resolving]
  - Headache [Recovering/Resolving]

NARRATIVE: CASE EVENT DATE: 20191012
